FAERS Safety Report 6150188-X (Version None)
Quarter: 2009Q2

REPORT INFORMATION
  Report Type: 
  Country: None (occurrence: None)
  Receive Date: 20090407
  Receipt Date: 20090318
  Transmission Date: 20091009
  Serious: Yes (Hospitalization)
  Sender: FDA-Public Use
  Company Number: PVS4-18-MAR-2009

PATIENT
  Age: 44 Year
  Sex: Male
  Weight: 54 kg

DRUGS (5)
  1. SEROMYCIN [Suspect]
     Indication: PULMONARY TUBERCULOSIS
     Dosage: 750 MG,  1/D, ORAL
     Route: 048
     Dates: start: 20070716, end: 20071207
  2. ETHIONAMIDE [Concomitant]
  3. OFLOXACIN [Concomitant]
  4. PYRAZINAMIDE [Concomitant]
  5. KANAMYCIN [Concomitant]

REACTIONS (3)
  - CONFUSIONAL STATE [None]
  - DEPRESSION [None]
  - RESTLESSNESS [None]
